FAERS Safety Report 17573383 (Version 1)
Quarter: 2020Q1

REPORT INFORMATION
  Report Type: Report from Study
  Country: FR (occurrence: FR)
  Receive Date: 20200323
  Receipt Date: 20200323
  Transmission Date: 20200409
  Serious: Yes (Other)
  Sender: FDA-Public Use
  Company Number: FR-JNJFOC-20200314484

PATIENT
  Age: 50 Year
  Sex: Female
  Weight: 56 kg

DRUGS (1)
  1. SPRAVATO [Suspect]
     Active Substance: ESKETAMINE
     Indication: DEPRESSION
     Dates: start: 20200218

REACTIONS (7)
  - Asthenia [Unknown]
  - Dysgeusia [Unknown]
  - Dizziness [Unknown]
  - Hallucination, visual [Unknown]
  - Hypoaesthesia [Unknown]
  - Diplopia [Unknown]
  - Nausea [Unknown]

NARRATIVE: CASE EVENT DATE: 20200218
